FAERS Safety Report 4294592-3 (Version None)
Quarter: 2004Q1

REPORT INFORMATION
  Report Type: 
  Country: None (occurrence: None)
  Receive Date: 20040211
  Receipt Date: 20040129
  Transmission Date: 20041129
  Serious: Yes (Other)
  Sender: FDA-Public Use
  Company Number: 2004006488

PATIENT
  Age: 53 Year
  Sex: Female
  Weight: 58.0604 kg

DRUGS (6)
  1. GEODON [Suspect]
     Indication: POST-TRAUMATIC STRESS DISORDER
     Dosage: 20 MG (DAILY), ORAL
     Route: 048
     Dates: start: 20040106, end: 20040130
  2. VICODIN [Concomitant]
  3. DIAZEPAM [Concomitant]
  4. ALL OTHER THERAPEUTIC PRODUCTS [Concomitant]
  5. MULTIVITAMIN [Concomitant]
  6. TEMAZEPAM [Concomitant]

REACTIONS (16)
  - ABDOMINAL DISCOMFORT [None]
  - ABDOMINAL PAIN [None]
  - ANOREXIA [None]
  - ARRHYTHMIA [None]
  - CHEST PAIN [None]
  - CONFUSIONAL STATE [None]
  - COUGH [None]
  - DRUG INEFFECTIVE [None]
  - FEELING ABNORMAL [None]
  - HEART RATE INCREASED [None]
  - INSOMNIA [None]
  - ORTHOSTATIC HYPOTENSION [None]
  - RHINITIS [None]
  - SKIN DISORDER [None]
  - STRESS SYMPTOMS [None]
  - VENTRICULAR EXTRASYSTOLES [None]
